FAERS Safety Report 22076655 (Version 2)
Quarter: 2023Q1

REPORT INFORMATION
  Report Type: Report from Study
  Country: EG (occurrence: EG)
  Receive Date: 20230309
  Receipt Date: 20230317
  Transmission Date: 20230418
  Serious: Yes (Other)
  Sender: FDA-Public Use
  Company Number: EG-002147023-NVSC2023EG048722

PATIENT
  Age: 65 Year
  Sex: Male

DRUGS (5)
  1. BROLUCIZUMAB [Suspect]
     Active Substance: BROLUCIZUMAB
     Indication: Neovascular age-related macular degeneration
     Dosage: UNK (RIGHT EYE)
     Route: 031
     Dates: start: 20230207, end: 20230207
  2. LUCENTIS [Suspect]
     Active Substance: RANIBIZUMAB
     Indication: Neovascular age-related macular degeneration
     Dosage: UNK (RIGHT EYE)
     Route: 031
     Dates: start: 20200519
  3. LUCENTIS [Suspect]
     Active Substance: RANIBIZUMAB
     Dosage: UNK (RIGHT EYE)
     Route: 031
     Dates: start: 20221213, end: 20221213
  4. BLINK [Concomitant]
     Indication: Product used for unknown indication
     Dosage: 1 DRP, TAK, AFTER VSIQQ
     Route: 065
     Dates: start: 20230214, end: 20230217
  5. ERASTAPEX [Concomitant]
     Indication: Hypertension
     Dosage: 1 DOSAGE FORM, QD (10 YEARS AGO)
     Route: 048

REACTIONS (6)
  - Diabetes mellitus [Recovering/Resolving]
  - Drug ineffective [Recovered/Resolved]
  - Rhinorrhoea [Recovered/Resolved]
  - Lacrimation increased [Recovered/Resolved]
  - Drug hypersensitivity [Recovered/Resolved]
  - Visual impairment [Recovering/Resolving]

NARRATIVE: CASE EVENT DATE: 20200519
